FAERS Safety Report 8015945-3 (Version None)
Quarter: 2011Q4

REPORT INFORMATION
  Report Type: 
  Country: None (occurrence: None)
  Receive Date: 20111223
  Receipt Date: 20111215
  Transmission Date: 20120403
  Serious: Yes (Other)
  Sender: FDA-Public Use
  Company Number: GER/UKI/11/0018623

PATIENT
  Age: 21 Year
  Sex: Female

DRUGS (3)
  1. ESCITALOPRAM OXALATE [Suspect]
     Indication: ANXIETY
     Dosage: 20 MG, 1 IN 1 D, ORAL
     Route: 048
     Dates: start: 20101101
  2. RISPERIDONE [Suspect]
     Indication: DISTURBANCE IN SOCIAL BEHAVIOUR
     Dosage: ORAL, 1.5 MG, 1 IN 1 D, ORAL, 83
     Route: 048
     Dates: start: 20100415
  3. RISPERIDONE [Suspect]
     Indication: LEARNING DISABILITY
     Dosage: ORAL, 1.5 MG, 1 IN 1 D, ORAL, 83
     Route: 048
     Dates: start: 20100415

REACTIONS (3)
  - DISTURBANCE IN SOCIAL BEHAVIOUR [None]
  - OCULOGYRIC CRISIS [None]
  - DISEASE RECURRENCE [None]
